FAERS Safety Report 6582387-7 (Version None)
Quarter: 2010Q1

REPORT INFORMATION
  Report Type: 
  Country: None (occurrence: None)
  Receive Date: 20100216
  Receipt Date: 20100208
  Transmission Date: 20100710
  Serious: Yes (Other)
  Sender: FDA-Public Use
  Company Number: PT-AMGEN-QUU384289

PATIENT
  Sex: Male
  Weight: 53.4 kg

DRUGS (9)
  1. ARANESP [Suspect]
     Indication: DIALYSIS
     Route: 058
     Dates: start: 20040901
  2. NIFEDIPINE [Concomitant]
     Route: 048
     Dates: start: 20090211
  3. INSULIN [Concomitant]
     Route: 058
  4. FUROSEMIDE [Concomitant]
     Route: 048
     Dates: start: 20010901
  5. PRAVASTATIN [Concomitant]
     Route: 048
     Dates: start: 20071101
  6. OMEPRAZOLE [Concomitant]
     Route: 048
     Dates: start: 20071101
  7. VITAMIN B COMPLEX CAP [Concomitant]
     Route: 048
  8. FOLIC ACID [Concomitant]
     Route: 048
  9. IRON [Concomitant]
     Route: 042

REACTIONS (2)
  - APLASIA PURE RED CELL [None]
  - DRUG RESISTANCE [None]
